FAERS Safety Report 9414630 (Version 1)
Quarter: 2013Q3

REPORT INFORMATION
  Report Type: Spontaneous
  Country: GB (occurrence: GB)
  Receive Date: 20130723
  Receipt Date: 20130723
  Transmission Date: 20140515
  Serious: Yes (Other)
  Sender: FDA-Public Use
  Company Number: GB-PFIZER INC-2013211576

PATIENT
  Age: 28 Year
  Sex: Female
  Weight: 50.8 kg

DRUGS (5)
  1. LYRICA [Suspect]
     Indication: NEURALGIA
     Dosage: 150 MG, 2X/DAY
     Route: 048
     Dates: start: 20120301, end: 20130703
  2. LANSOPRAZOLE [Concomitant]
  3. FENTANYL [Concomitant]
  4. MORPHINE [Concomitant]
  5. TRAMADOL [Concomitant]

REACTIONS (4)
  - Dyspepsia [Not Recovered/Not Resolved]
  - Chest pain [Unknown]
  - Throat irritation [Unknown]
  - Nausea [Unknown]
